FAERS Safety Report 25676996 (Version 1)
Quarter: 2025Q3

REPORT INFORMATION
  Report Type: Spontaneous
  Country: EU (occurrence: EU)
  Receive Date: 20250813
  Receipt Date: 20250813
  Transmission Date: 20251021
  Serious: Yes (Life-Threatening, Hospitalization)
  Sender: GALPHARM INTERNATIONAL
  Company Number: EU-SANDOZ-SDZ2025PT011062

PATIENT
  Age: 20 Year
  Sex: Female

DRUGS (1)
  1. ACETAMINOPHEN [Suspect]
     Active Substance: ACETAMINOPHEN
     Indication: Alcoholic hangover
     Route: 048

REACTIONS (9)
  - Hepatic encephalopathy [Recovering/Resolving]
  - Acute hepatic failure [Recovering/Resolving]
  - Respiratory alkalosis [Recovering/Resolving]
  - Toxicity to various agents [Recovering/Resolving]
  - Hypoalbuminaemia [Recovering/Resolving]
  - Pancytopenia [Recovering/Resolving]
  - Coagulopathy [Recovering/Resolving]
  - Hyperammonaemia [Recovering/Resolving]
  - Intentional product misuse [Recovering/Resolving]
